FAERS Safety Report 6936062-7 (Version None)
Quarter: 2010Q3

REPORT INFORMATION
  Report Type: 
  Country: None (occurrence: None)
  Receive Date: 20100816
  Receipt Date: 20091012
  Transmission Date: 20110219
  Serious: Yes (Hospitalization, Other)
  Sender: FDA-Public Use
  Company Number: US-WYE-H11603309

PATIENT
  Age: 47 Year
  Sex: Male

DRUGS (2)
  1. TYGACIL [Suspect]
     Indication: LYME DISEASE
     Dosage: INTRAVENEOUS
     Route: 042
     Dates: start: 20091001
  2. ZETIA [Concomitant]

REACTIONS (3)
  - NAUSEA [None]
  - PANCREATITIS [None]
  - VOMITING [None]
